FAERS Safety Report 5641059-3 (Version None)
Quarter: 2008Q1

REPORT INFORMATION
  Report Type: 
  Country: None (occurrence: None)
  Receive Date: 20080227
  Receipt Date: 20070410
  Transmission Date: 20080703
  Serious: Yes (Hospitalization, Other)
  Sender: FDA-Public Use
  Company Number: US-ASTRAZENECA-2007UW02069

PATIENT
  Age: 565 Month
  Sex: Male
  Weight: 113.6 kg

DRUGS (6)
  1. SEROQUEL [Suspect]
     Indication: BIPOLAR DISORDER
     Dosage: 100 MG TO 700 MG
     Route: 048
     Dates: start: 19971107, end: 20040225
  2. SEROQUEL [Suspect]
     Indication: DEPRESSION
     Dosage: 100 MG TO 700 MG
     Route: 048
     Dates: start: 19971107, end: 20040225
  3. SEROQUEL [Suspect]
     Indication: SCHIZOAFFECTIVE DISORDER
     Dosage: 100 MG TO 700 MG
     Route: 048
     Dates: start: 19971107, end: 20040225
  4. CLOZARIL [Concomitant]
     Dosage: 200 MG TO 700 MG
     Dates: start: 19970101
  5. RISPERDAL [Concomitant]
     Dosage: 0.5 MG TO 3 MG
     Dates: start: 19960101
  6. ZYPREXA [Concomitant]
     Dosage: 5 MG TO 15 MG
     Dates: start: 19970901, end: 19971001

REACTIONS (25)
  - ABDOMINAL PAIN [None]
  - ARTHRALGIA [None]
  - ASTHMA [None]
  - AUTOIMMUNE HEPATITIS [None]
  - BIPOLAR DISORDER [None]
  - BLOOD CHOLESTEROL INCREASED [None]
  - CARDIAC DISORDER [None]
  - CELLULITIS [None]
  - CONSTIPATION [None]
  - GASTROOESOPHAGEAL REFLUX DISEASE [None]
  - HEADACHE [None]
  - INFECTION [None]
  - JOINT SWELLING [None]
  - MUSCLE STRAIN [None]
  - MUSCULOSKELETAL DISORDER [None]
  - MUSCULOSKELETAL PAIN [None]
  - NASAL CONGESTION [None]
  - OBESITY [None]
  - PNEUMONIA [None]
  - POLLAKIURIA [None]
  - RADICULITIS [None]
  - RASH [None]
  - RESPIRATORY TRACT CONGESTION [None]
  - SUICIDAL IDEATION [None]
  - TYPE 2 DIABETES MELLITUS [None]
